FAERS Safety Report 11205678 (Version 2)
Quarter: 2015Q3

REPORT INFORMATION
  Report Type: Spontaneous
  Country: GB (occurrence: GB)
  Receive Date: 20150622
  Receipt Date: 20150805
  Transmission Date: 20151125
  Serious: Yes (Life-Threatening, Hospitalization, Disabling, Other)
  Sender: FDA-Public Use
  Company Number: GB-SANOFI-AVENTIS-2012SA066011

PATIENT
  Age: 72 Year
  Sex: Male
  Weight: 90 kg

DRUGS (13)
  1. CLEXANE [Suspect]
     Active Substance: ENOXAPARIN SODIUM
     Indication: PULMONARY EMBOLISM
     Route: 065
     Dates: start: 20120413, end: 20121012
  2. VEMURAFENIB [Suspect]
     Active Substance: VEMURAFENIB
     Indication: METASTATIC MALIGNANT MELANOMA
     Dosage: LAST DOSE PRIOR TO SAE ON 7/JUN/2012 = 960 MG, BID
     Route: 048
     Dates: start: 20120214, end: 20120613
  3. VEMURAFENIB [Suspect]
     Active Substance: VEMURAFENIB
     Indication: METASTATIC MALIGNANT MELANOMA
     Dosage: LAST DOSE PRIOR TO SAE ON 7/JUN/2012 = 960 MG, BID
     Route: 048
     Dates: start: 20120828
  4. BETNOVATE [Concomitant]
     Active Substance: BETAMETHASONE
     Dates: start: 20120314
  5. CETRABEN [Concomitant]
     Active Substance: PARAFFIN
     Dosage: EMOLLIENT CREAM
  6. CLEXANE [Suspect]
     Active Substance: ENOXAPARIN SODIUM
     Indication: PULMONARY EMBOLISM
     Route: 065
  7. FELODIPINE. [Concomitant]
     Active Substance: FELODIPINE
     Dates: start: 2004
  8. PERINDOPRIL [Concomitant]
     Active Substance: PERINDOPRIL
     Dates: start: 2004
  9. VEMURAFENIB [Suspect]
     Active Substance: VEMURAFENIB
     Indication: METASTATIC MALIGNANT MELANOMA
     Dosage: LAST DOSE PRIOR TO SAE ON 7/JUN/2012 = 960 MG, BID
     Route: 048
     Dates: start: 20120621, end: 20120821
  10. PREDNISOLONE. [Concomitant]
     Active Substance: PREDNISOLONE
     Dates: start: 20120314, end: 20120320
  11. VIAGRA [Concomitant]
     Active Substance: SILDENAFIL CITRATE
     Dates: start: 201001, end: 20111212
  12. LORATADINE. [Concomitant]
     Active Substance: LORATADINE
     Dates: start: 2010, end: 20111201
  13. SYNALAR [Concomitant]
     Active Substance: FLUOCINOLONE ACETONIDE
     Route: 061
     Dates: start: 20120314

REACTIONS (4)
  - Anal abscess [Recovered/Resolved]
  - Cerebral haemorrhage [Recovered/Resolved with Sequelae]
  - Pulmonary embolism [Recovered/Resolved]
  - Keratoacanthoma [Recovered/Resolved]

NARRATIVE: CASE EVENT DATE: 20120412
